FAERS Safety Report 9944561 (Version 1)
Quarter: 2014Q1

REPORT INFORMATION
  Report Type: Report from Study
  Country: US (occurrence: US)
  Receive Date: 20140303
  Receipt Date: 20140303
  Transmission Date: 20141002
  Serious: No
  Sender: FDA-Public Use
  Company Number: US-ABBVIE-13P-163-1050338-00

PATIENT
  Age: 44 Year
  Sex: Female

DRUGS (1)
  1. HUMIRA [Suspect]
     Indication: CROHN^S DISEASE
     Dosage: THE FIRST 2 DOSES ONLY

REACTIONS (3)
  - Migraine [Recovered/Resolved]
  - Hypothalamo-pituitary disorder [Recovered/Resolved]
  - Drug hypersensitivity [Recovered/Resolved]
